FAERS Safety Report 9266149 (Version 1)
Quarter: 2013Q2

REPORT INFORMATION
  Report Type: Spontaneous
  Country: DE (occurrence: DE)
  Receive Date: 20130502
  Receipt Date: 20130502
  Transmission Date: 20140414
  Serious: Yes (Hospitalization)
  Sender: FDA-Public Use
  Company Number: DE-AMGEN-DEUSP2013030371

PATIENT
  Age: 65 Year
  Sex: Female

DRUGS (8)
  1. ENBREL [Suspect]
     Indication: RHEUMATOID ARTHRITIS
     Dosage: 50 MG, WEEKLY
     Dates: start: 20120517
  2. L-THYROXIN [Concomitant]
     Dosage: 150 UNK, UNK
  3. OLMETEC [Concomitant]
     Dosage: UNK
  4. VERAPAMIL [Concomitant]
     Dosage: UNK
  5. ARCOXIA [Concomitant]
     Dosage: 90 UNK, UNK
  6. CALCIUM [Concomitant]
     Dosage: UNK
  7. DEKRISTOL [Concomitant]
     Dosage: UNK UNK, Q2WK
  8. OXYGESIC [Concomitant]
     Dosage: 30 MG, UNK

REACTIONS (2)
  - Femur fracture [Not Recovered/Not Resolved]
  - Fall [Not Recovered/Not Resolved]
